FAERS Safety Report 5733990-5 (Version None)
Quarter: 2008Q2

REPORT INFORMATION
  Report Type: 
  Country: None (occurrence: None)
  Receive Date: 20080509
  Receipt Date: 20080427
  Transmission Date: 20081010
  Serious: Yes (Hospitalization, Other)
  Sender: FDA-Public Use
  Company Number: US-PFIZER INC-2008038051

PATIENT
  Age: 49 Year
  Sex: Female
  Weight: 70.3 kg

DRUGS (11)
  1. CHANTIX [Suspect]
     Indication: SMOKING CESSATION THERAPY
  2. FLUCONAZOLE [Interacting]
     Indication: FUNGAL INFECTION
  3. WARFARIN SODIUM [Interacting]
  4. PREDNISONE TAB [Concomitant]
  5. ALBUTEROL [Concomitant]
  6. WELLBUTRIN [Concomitant]
  7. CYCLOBENZAPRINE HCL [Concomitant]
  8. ABILIFY [Concomitant]
  9. ALPRAZOLAM [Concomitant]
  10. LORTAB [Concomitant]
  11. NEURONTIN [Concomitant]

REACTIONS (2)
  - DRUG INTERACTION [None]
  - INTERNATIONAL NORMALISED RATIO INCREASED [None]
